FAERS Safety Report 4306570-6 (Version None)
Quarter: 2004Q1

REPORT INFORMATION
  Report Type: 
  Country: None (occurrence: None)
  Receive Date: 20040225
  Receipt Date: 20030904
  Transmission Date: 20041129
  Serious: No
  Sender: FDA-Public Use
  Company Number: US-BRISTOL-MYERS SQUIBB COMPANY-12393187

PATIENT
  Age: 62 Year
  Sex: Female
  Weight: 113 kg

DRUGS (2)
  1. EXCEDRIN ES TABS [Suspect]
     Indication: BACK PAIN
     Dosage: DOSAGE: 1 TO 2 TABLETS TWICE DAILY
     Route: 048
  2. PROZAC [Concomitant]

REACTIONS (1)
  - FEELING ABNORMAL [None]
